FAERS Safety Report 6611199-0 (Version None)
Quarter: 2010Q1

REPORT INFORMATION
  Report Type: 
  Country: None (occurrence: None)
  Receive Date: 20100303
  Receipt Date: 20100216
  Transmission Date: 20100710
  Serious: Yes (Life-Threatening, Hospitalization, Other)
  Sender: FDA-Public Use
  Company Number: CA-ELI_LILLY_AND_COMPANY-CA201002004798

PATIENT
  Age: 81 Year
  Sex: Male

DRUGS (1)
  1. FORTEO [Suspect]
     Indication: OSTEOPOROSIS
     Dosage: 20 UG, DAILY (1/D)
     Route: 058
     Dates: start: 20100201, end: 20100205

REACTIONS (6)
  - BALANCE DISORDER [None]
  - FALL [None]
  - HEAD INJURY [None]
  - PNEUMONIA [None]
  - RESPIRATORY FAILURE [None]
  - UNRESPONSIVE TO STIMULI [None]
